FAERS Safety Report 21143122 (Version 1)
Quarter: 2022Q3

REPORT INFORMATION
  Report Type: Spontaneous
  Country: US (occurrence: None)
  Receive Date: 20220728
  Receipt Date: 20220728
  Transmission Date: 20221027
  Serious: Yes (Other)
  Sender: FDA-Public Use
  Company Number: None

PATIENT
  Age: 74 Year
  Sex: Female
  Weight: 70.3 kg

DRUGS (3)
  1. ARIKAYCE [Suspect]
     Active Substance: AMIKACIN
     Indication: Atypical mycobacterial infection
     Dosage: FREQUENCY : DAILY;?
     Route: 055
     Dates: start: 20220527, end: 20220608
  2. ARIKAYCE [Suspect]
     Active Substance: AMIKACIN
     Indication: Pneumonia fungal
  3. ARIKAYCE [Suspect]
     Active Substance: AMIKACIN
     Indication: Pneumonia fungal

REACTIONS (4)
  - Allodynia [None]
  - Hyperaesthesia [None]
  - Glossodynia [None]
  - Eating disorder [None]

NARRATIVE: CASE EVENT DATE: 20220701
